FAERS Safety Report 7149427-8 (Version None)
Quarter: 2010Q4

REPORT INFORMATION
  Report Type: 
  Country: None (occurrence: None)
  Receive Date: 20101209
  Receipt Date: 20101014
  Transmission Date: 20110411
  Serious: No
  Sender: FDA-Public Use
  Company Number: US-KINGPHARMUSA00001-K201001282

PATIENT
  Sex: Male
  Weight: 87.075 kg

DRUGS (6)
  1. EMBEDA [Suspect]
     Indication: PAIN
     Dosage: 30 MG, (TOOK A TOTAL OF 4 CAPSULES ONLY)
     Route: 048
     Dates: start: 20101012, end: 20101013
  2. LEVOTHYROXINE SODIUM [Concomitant]
  3. LISINOPRIL [Concomitant]
  4. ROSUVASTATIN [Concomitant]
  5. MULTI-VITAMINS [Concomitant]
  6. DICLOFENAC [Concomitant]

REACTIONS (2)
  - HEADACHE [None]
  - NAUSEA [None]
